FAERS Safety Report 6412574-X (Version None)
Quarter: 2009Q4

REPORT INFORMATION
  Report Type: 
  Country: None (occurrence: None)
  Receive Date: 20091023
  Receipt Date: 20091010
  Transmission Date: 20100525
  Serious: Yes (Other)
  Sender: FDA-Public Use
  Company Number: PL-ROCHE-663300

PATIENT
  Age: 39 Year
  Sex: Male
  Weight: 93 kg

DRUGS (8)
  1. PEG-INTERFERON ALFA 2A (RO 25-8310) [Suspect]
     Indication: HIV INFECTION
     Route: 065
     Dates: start: 20071004, end: 20080901
  2. VIRACEPT [Suspect]
     Indication: HIV INFECTION
     Dosage: THERAPY START FROM YEAR 2000-2006.
     Route: 065
     Dates: end: 20070601
  3. RIBAVIRIN [Suspect]
     Indication: HIV INFECTION
     Route: 065
     Dates: start: 20071004
  4. RIBAVIRIN [Suspect]
     Route: 065
     Dates: start: 20071101, end: 20080901
  5. SAQUINAVIR [Suspect]
     Indication: HIV INFECTION
     Dosage: THERAPY MODIFICATION
     Route: 065
     Dates: start: 20071003
  6. TENOFOVIR [Concomitant]
     Dates: start: 20071003
  7. LAMIVUDINE [Concomitant]
     Dates: start: 20071003
  8. RITONAVIR [Concomitant]
     Dates: start: 20071003

REACTIONS (6)
  - HAEMOGLOBIN DECREASED [None]
  - LYMPHADENOPATHY [None]
  - PNEUMOCYSTIS JIROVECI PNEUMONIA [None]
  - POST THROMBOTIC SYNDROME [None]
  - STAPHYLOCOCCAL INFECTION [None]
  - TUBERCULIN TEST POSITIVE [None]
